FAERS Safety Report 14342065 (Version 2)
Quarter: 2018Q2

REPORT INFORMATION
  Report Type: Report from Study
  Country: US (occurrence: US)
  Receive Date: 20180102
  Receipt Date: 20180423
  Transmission Date: 20180711
  Serious: No
  Sender: FDA-Public Use
  Company Number: US-ASTRAZENECA-2017SE29554

PATIENT
  Age: 93 Year
  Sex: Female

DRUGS (14)
  1. AMLODIPINE [Concomitant]
     Active Substance: AMLODIPINE BESYLATE
  2. FAMOTIDINE. [Concomitant]
     Active Substance: FAMOTIDINE
  3. GABAPENTIN. [Concomitant]
     Active Substance: GABAPENTIN
  4. ICAPS [Concomitant]
     Active Substance: MINERALS\VITAMINS
  5. STOOL SOFTENER (DOCUSATE) [Concomitant]
     Active Substance: DOCUSATE
  6. LISINOPRIL. [Suspect]
     Active Substance: LISINOPRIL
     Route: 048
  7. ACETAMINOPHEN. [Concomitant]
     Active Substance: ACETAMINOPHEN
  8. FUROSEMIDE. [Concomitant]
     Active Substance: FUROSEMIDE
  9. LEVOTHYROXINE. [Concomitant]
     Active Substance: LEVOTHYROXINE
  10. MULTIVITAMIN [Concomitant]
     Active Substance: VITAMINS
  11. ASPIRIN. [Concomitant]
     Active Substance: ASPIRIN
  12. IRESSA [Suspect]
     Active Substance: GEFITINIB
     Indication: LUNG CARCINOMA CELL TYPE UNSPECIFIED STAGE 0
     Route: 048
     Dates: start: 20170214
  13. PSYLLIUM HUSK. [Concomitant]
     Active Substance: PSYLLIUM HUSK
  14. IRESSA [Suspect]
     Active Substance: GEFITINIB
     Indication: LUNG NEOPLASM MALIGNANT
     Route: 048
     Dates: start: 20170214

REACTIONS (8)
  - Drug prescribing error [Not Recovered/Not Resolved]
  - Skin exfoliation [Unknown]
  - Decreased appetite [Unknown]
  - Neck pain [Unknown]
  - Dry skin [Unknown]
  - Fatigue [Unknown]
  - Somnolence [Unknown]
  - Drug dose omission [Not Recovered/Not Resolved]
